FAERS Safety Report 20842626 (Version 4)
Quarter: 2022Q3

REPORT INFORMATION
  Report Type: Spontaneous
  Country: US (occurrence: US)
  Receive Date: 20220518
  Receipt Date: 20220722
  Transmission Date: 20221027
  Serious: No
  Sender: FDA-Public Use
  Company Number: US-BIOGEN-2022BI01123712

PATIENT
  Age: 72 Year
  Sex: Female

DRUGS (8)
  1. AVONEX PEN [Suspect]
     Active Substance: INTERFERON BETA-1A
     Indication: Multiple sclerosis
     Route: 050
     Dates: start: 20180215
  2. AVONEX PEN [Suspect]
     Active Substance: INTERFERON BETA-1A
     Route: 050
     Dates: start: 20010101, end: 20120101
  3. AVONEX PEN [Suspect]
     Active Substance: INTERFERON BETA-1A
     Route: 050
     Dates: start: 201802, end: 201903
  4. AVONEX PEN [Suspect]
     Active Substance: INTERFERON BETA-1A
  5. AVONEX [Suspect]
     Active Substance: INTERFERON BETA-1A
     Indication: Relapsing-remitting multiple sclerosis
     Route: 050
     Dates: start: 2001, end: 201905
  6. AVONEX [Suspect]
     Active Substance: INTERFERON BETA-1A
  7. AVONEX [Suspect]
     Active Substance: INTERFERON BETA-1A
  8. AVONEX [Suspect]
     Active Substance: INTERFERON BETA-1A

REACTIONS (8)
  - Herpes zoster [Unknown]
  - Multiple sclerosis [Unknown]
  - Tremor [Unknown]
  - COVID-19 [Recovered/Resolved]
  - Feeling cold [Recovered/Resolved]
  - Neutrophil percentage decreased [Recovered/Resolved]
  - Neutrophil count decreased [Recovered/Resolved]
  - White blood cell count decreased [Recovered/Resolved]

NARRATIVE: CASE EVENT DATE: 20190201
